FAERS Safety Report 19980979 (Version 1)
Quarter: 2021Q4

REPORT INFORMATION
  Report Type: Spontaneous
  Country: NL (occurrence: FR)
  Receive Date: 20211021
  Receipt Date: 20211021
  Transmission Date: 20220303
  Serious: Yes (Hospitalization)
  Sender: FDA-Public Use
  Company Number: None

PATIENT
  Age: 66 Year
  Sex: Female

DRUGS (12)
  1. ACETAMINOPHEN [Suspect]
     Active Substance: ACETAMINOPHEN
     Indication: Product used for unknown indication
     Dosage: MAX 2G/24, 12H BETWEEN EACH DOSE
     Route: 041
     Dates: start: 202109, end: 20210920
  2. RACECADOTRIL [Suspect]
     Active Substance: RACECADOTRIL
     Indication: Product used for unknown indication
     Route: 048
     Dates: start: 202109
  3. HALOPERIDOL [Suspect]
     Active Substance: HALOPERIDOL
     Indication: Nausea
     Route: 048
     Dates: start: 202109
  4. OXYCODONE HYDROCHLORIDE [Suspect]
     Active Substance: OXYCODONE HYDROCHLORIDE
     Indication: Product used for unknown indication
     Dosage: OXYCODONE MYLAN LP 10 MG,EXTENDED RELEASE COATED TABLET
     Route: 048
     Dates: start: 202109
  5. PHLOROGLUCINOL [Suspect]
     Active Substance: PHLOROGLUCINOL
     Indication: Product used for unknown indication
     Dosage: PHLOROGLUCINOL HYDRATE ?MAX 240MG/DAY,6H BETWEEN TWO DOSES
     Route: 042
     Dates: start: 202109
  6. CLAVULANIC ACID [Suspect]
     Active Substance: CLAVULANIC ACID
     Indication: Acute endocarditis
     Route: 042
     Dates: start: 20210902, end: 20210920
  7. VANCOMYCIN [Suspect]
     Active Substance: VANCOMYCIN
     Indication: Acute endocarditis
     Dosage: VANCOMYCIN BASE
     Dates: start: 20210831, end: 20210910
  8. PANTOPRAZOLE [Suspect]
     Active Substance: PANTOPRAZOLE
     Indication: Product used for unknown indication
     Route: 042
     Dates: start: 202109
  9. METOCLOPRAMIDE [Suspect]
     Active Substance: METOCLOPRAMIDE
     Indication: Product used for unknown indication
     Route: 042
     Dates: start: 202109
  10. MONTMORILLONITE [Suspect]
     Active Substance: MONTMORILLONITE
     Indication: Product used for unknown indication
     Route: 048
     Dates: start: 202109
  11. OXYCODONE [Suspect]
     Active Substance: OXYCODONE
     Indication: Product used for unknown indication
     Route: 048
     Dates: start: 202109
  12. AMOXICILLIN [Suspect]
     Active Substance: AMOXICILLIN
     Indication: Acute endocarditis
     Route: 042
     Dates: start: 20210902, end: 20210920

REACTIONS (1)
  - Hepatitis acute [Recovering/Resolving]

NARRATIVE: CASE EVENT DATE: 20210920
